FAERS Safety Report 5767024-3 (Version None)
Quarter: 2008Q2

REPORT INFORMATION
  Report Type: 
  Country: None (occurrence: None)
  Receive Date: 20080609
  Receipt Date: 20080523
  Transmission Date: 20081010
  Serious: Yes (Other)
  Sender: FDA-Public Use
  Company Number: TRP-05655_2008

PATIENT
  Sex: Female

DRUGS (5)
  1. RIBAVIRIN [Suspect]
     Indication: HEPATITIS C VIRUS
     Dosage: 800 MG ORAL
     Route: 048
     Dates: start: 20080116, end: 20080505
  2. PEGASYS [Suspect]
     Indication: HEPATITIS C VIRUS
     Dosage: 135 ?G 1X/WEEK SUBCUTANOEUS, 180 ?G 1X/WEEK SUBCUTANEOUS
     Route: 030
     Dates: start: 20080116, end: 20080101
  3. PEGASYS [Suspect]
     Indication: HEPATITIS C VIRUS
     Dosage: 135 ?G 1X/WEEK SUBCUTANOEUS, 180 ?G 1X/WEEK SUBCUTANEOUS
     Route: 030
     Dates: start: 20080101, end: 20080430
  4. NEUPOGEN [Concomitant]
  5. PROCRIT [Concomitant]

REACTIONS (18)
  - ANAEMIA [None]
  - ANOREXIA [None]
  - ANXIETY [None]
  - ASTHENIA [None]
  - BASAL CELL CARCINOMA [None]
  - BLISTER [None]
  - DIZZINESS [None]
  - DRY SKIN [None]
  - DYSPNOEA [None]
  - FALL [None]
  - FATIGUE [None]
  - HERPES ZOSTER [None]
  - JOINT INJURY [None]
  - NEUTROPHIL COUNT DECREASED [None]
  - RASH [None]
  - SKIN DISORDER [None]
  - SKIN ULCER [None]
  - WHITE BLOOD CELL COUNT DECREASED [None]
